FAERS Safety Report 4870799-9 (Version None)
Quarter: 2006Q1

REPORT INFORMATION
  Report Type: 
  Country: None (occurrence: None)
  Receive Date: 20060103
  Receipt Date: 20050401
  Transmission Date: 20060701
  Serious: Yes (Hospitalization)
  Sender: FDA-Public Use
  Company Number: US-MERCK-0504USA00822

PATIENT
  Age: 53 Year
  Sex: Female
  Weight: 100 kg

DRUGS (2)
  1. VIOXX [Suspect]
     Indication: SPONDYLITIS
     Route: 048
     Dates: start: 20010101, end: 20040901
  2. TYLENOL [Concomitant]
     Route: 065

REACTIONS (3)
  - ARTHROPATHY [None]
  - CARDIAC DISORDER [None]
  - CORONARY ARTERY OCCLUSION [None]
